FAERS Safety Report 9714118 (Version 2)
Quarter: 2013Q4

REPORT INFORMATION
  Report Type: Spontaneous
  Country: US (occurrence: US)
  Receive Date: 20131126
  Receipt Date: 20131126
  Transmission Date: 20140711
  Serious: No
  Sender: FDA-Public Use
  Company Number: US-GILEAD-2008-0018158

PATIENT
  Age: 68 Year
  Sex: Female
  Weight: 73.94 kg

DRUGS (9)
  1. LETAIRIS [Suspect]
     Indication: PULMONARY ARTERIAL HYPERTENSION
     Route: 048
     Dates: start: 20080913
  2. CENTRUM SILVER [Concomitant]
  3. SIMVASTATIN [Concomitant]
     Route: 048
  4. ASA EC [Concomitant]
     Route: 048
  5. PLAVIX [Concomitant]
     Route: 048
  6. CALCIUM + D [Concomitant]
     Route: 048
  7. GLIMEPIRIDE [Concomitant]
     Route: 048
  8. LEVOTHYROXINE [Concomitant]
     Route: 048
  9. HYDROXYCHLOROQUINE [Concomitant]
     Route: 048

REACTIONS (4)
  - Viral upper respiratory tract infection [Recovered/Resolved]
  - Cough [Recovered/Resolved]
  - Rhinorrhoea [Recovered/Resolved]
  - Sneezing [Recovered/Resolved]
